FAERS Safety Report 26084274 (Version 1)
Quarter: 2025Q4

REPORT INFORMATION
  Report Type: Spontaneous
  Country: US (occurrence: US)
  Receive Date: 20251124
  Receipt Date: 20251124
  Transmission Date: 20260118
  Serious: Yes (Hospitalization)
  Sender: NOVO NORDISK
  Company Number: US-NOVOPROD-1568806

PATIENT
  Age: 65 Year
  Sex: Female

DRUGS (3)
  1. WEGOVY [Suspect]
     Active Substance: SEMAGLUTIDE
     Indication: Weight control
     Dosage: 2.4 MG QW
     Route: 058
     Dates: start: 2022, end: 202503
  2. WEGOVY [Suspect]
     Active Substance: SEMAGLUTIDE
     Dosage: 0.5 MG
     Dates: end: 202507
  3. WEGOVY [Suspect]
     Active Substance: SEMAGLUTIDE
     Dosage: 0.25 MG
     Dates: start: 202505

REACTIONS (8)
  - Hemiparesis [Not Recovered/Not Resolved]
  - Paraesthesia [Recovered/Resolved with Sequelae]
  - Blood pressure increased [Recovered/Resolved]
  - Cardiac disorder [Recovered/Resolved]
  - Feeling abnormal [Recovered/Resolved]
  - Panic attack [Recovered/Resolved]
  - Glycosylated haemoglobin increased [Unknown]
  - Abdominal discomfort [Recovered/Resolved]

NARRATIVE: CASE EVENT DATE: 20250101
